FAERS Safety Report 9289578 (Version 10)
Quarter: 2014Q4

REPORT INFORMATION
  Report Type: Spontaneous
  Country: AR (occurrence: AR)
  Receive Date: 20130515
  Receipt Date: 20141128
  Transmission Date: 20150529
  Serious: Yes (Hospitalization, Other)
  Sender: FDA-Public Use
  Company Number: AR-AMGEN-ARGSP2013033870

PATIENT
  Age: 48 Year
  Sex: Male

DRUGS (1)
  1. ENBREL [Suspect]
     Active Substance: ETANERCEPT
     Indication: PSORIATIC ARTHROPATHY
     Dosage: 50 MG, WEEKLY
     Route: 058
     Dates: start: 20111122

REACTIONS (2)
  - Mental disorder [Not Recovered/Not Resolved]
  - Emotional disorder [Recovering/Resolving]

NARRATIVE: CASE EVENT DATE: 201305
